FAERS Safety Report 21568196 (Version 1)
Quarter: 2022Q4

REPORT INFORMATION
  Report Type: Spontaneous
  Country: US (occurrence: None)
  Receive Date: 20221106
  Receipt Date: 20221106
  Transmission Date: 20230112
  Serious: No
  Sender: FDA-Public Use
  Company Number: None

PATIENT

DRUGS (1)
  1. CEFTRIAXONE SODIUM [Suspect]
     Active Substance: CEFTRIAXONE SODIUM
     Route: 041

REACTIONS (5)
  - Product label confusion [None]
  - Physical product label issue [None]
  - Product barcode issue [None]
  - Product barcode issue [None]
  - Circumstance or information capable of leading to medication error [None]
